FAERS Safety Report 7934361 (Version 2)
Quarter: 2015Q2

REPORT INFORMATION
  Report Type: Report from Study
  Country: US (occurrence: US)
  Receive Date: 20110506
  Receipt Date: 20150427
  Transmission Date: 20150821
  Serious: Yes (Death, Hospitalization, Other)
  Sender: FDA-Public Use
  Company Number: PHHO2011US07512

PATIENT
  Sex: Female
  Weight: 46.9 kg

DRUGS (2)
  1. AFINITOR [Suspect]
     Active Substance: EVEROLIMUS
     Indication: PLASMA CELL MYELOMA
     Dosage: 5 MG, UNK
     Route: 048
     Dates: start: 20110413, end: 20110419
  2. LBH589 [Suspect]
     Active Substance: PANOBINOSTAT
     Indication: PLASMA CELL MYELOMA
     Dosage: 40 MG, MWF
     Route: 048
     Dates: start: 20110413, end: 20110419

REACTIONS (4)
  - Pneumonia [Fatal]
  - Multi-organ failure [Fatal]
  - Lymphocyte count decreased [Unknown]
  - White blood cell count decreased [Unknown]
